FAERS Safety Report 20417744 (Version 1)
Quarter: 2022Q1

REPORT INFORMATION
  Report Type: Spontaneous
  Country: US (occurrence: None)
  Receive Date: 20220202
  Receipt Date: 20220202
  Transmission Date: 20220423
  Serious: No
  Sender: FDA-Public Use
  Company Number: None

PATIENT
  Sex: Male

DRUGS (12)
  1. LETAIRIS [Suspect]
     Active Substance: AMBRISENTAN
     Indication: Pulmonary arterial hypertension
     Dosage: FREQUENCY : DAILY;?
     Route: 048
  2. SILDENAFIL CITRATE [Concomitant]
     Active Substance: SILDENAFIL CITRATE
  3. VELETRI [Concomitant]
     Active Substance: EPOPROSTENOL
  4. AZELASTINE HYDROCHLORIDE [Concomitant]
     Active Substance: AZELASTINE HYDROCHLORIDE
  5. CYCLOBENZAPRINE HYDROCHLO [Concomitant]
  6. NAPROXEN [Concomitant]
     Active Substance: NAPROXEN
  7. ASPIRIN [Concomitant]
     Active Substance: ASPIRIN
  8. LEVOTHYROXINE SODIUM [Concomitant]
     Active Substance: LEVOTHYROXINE SODIUM
  9. SIMVASTATIN [Concomitant]
     Active Substance: SIMVASTATIN
  10. FERROUS SULFATE [Concomitant]
     Active Substance: FERROUS SULFATE
  11. UPTRAVI [Concomitant]
     Active Substance: SELEXIPAG
  12. AMOXICILLIN [Concomitant]
     Active Substance: AMOXICILLIN

REACTIONS (1)
  - Headache [None]
